FAERS Safety Report 18244510 (Version 2)
Quarter: 2020Q3

REPORT INFORMATION
  Report Type: Report from Study
  Country: AR (occurrence: AR)
  Receive Date: 20200908
  Receipt Date: 20200923
  Transmission Date: 20201103
  Serious: Yes (Hospitalization)
  Sender: FDA-Public Use
  Company Number: NVSC2020AR244516

PATIENT
  Age: 59 Year
  Sex: Male

DRUGS (6)
  1. ENTRESTO [Suspect]
     Active Substance: SACUBITRIL\VALSARTAN
     Dosage: 200 MG, QD
     Route: 065
  2. ALDACTONE [Concomitant]
     Active Substance: SPIRONOLACTONE
     Indication: CARDIAC FAILURE
     Dosage: UNK (INDICATED DURING THE HOSPITALIZATION)
     Route: 065
     Dates: start: 202008
  3. ENTRESTO [Suspect]
     Active Substance: SACUBITRIL\VALSARTAN
     Dosage: 100 MG, BID (ONE IN THE MORNING AND ONE AT NIGHT)
     Route: 065
  4. ENTRESTO [Suspect]
     Active Substance: SACUBITRIL\VALSARTAN
     Indication: CARDIAC FAILURE
     Dosage: 50 MG, BID (STARTED 2 WEEKS AGO, 1 IN MORNING AND ONE AT NIGHT)
     Route: 065
  5. ENTRESTO [Suspect]
     Active Substance: SACUBITRIL\VALSARTAN
     Dosage: 150 MG, QD
     Route: 065
  6. ENTRESTO [Suspect]
     Active Substance: SACUBITRIL\VALSARTAN
     Dosage: 0.5 DF, BID (HALF IN THE MORNING AND HALF AT NIGHT)
     Route: 065
     Dates: start: 202008

REACTIONS (10)
  - Hypotension [Unknown]
  - Blood potassium decreased [Unknown]
  - Suspected COVID-19 [Unknown]
  - Agitation [Recovered/Resolved]
  - Wrong technique in product usage process [Unknown]
  - Pneumonia [Unknown]
  - Inappropriate schedule of product administration [Unknown]
  - Chest pain [Recovered/Resolved]
  - Chest discomfort [Not Recovered/Not Resolved]
  - Heart rate decreased [Unknown]

NARRATIVE: CASE EVENT DATE: 202008
